FAERS Safety Report 23504288 (Version 3)
Quarter: 2024Q2

REPORT INFORMATION
  Report Type: Spontaneous
  Country: DE (occurrence: DE)
  Receive Date: 20240209
  Receipt Date: 20240516
  Transmission Date: 20240716
  Serious: Yes (Other)
  Sender: FDA-Public Use
  Company Number: DE-GSKCCFEMEA-Case-01908660_AE-79968

PATIENT

DRUGS (6)
  1. NUCALA [Suspect]
     Active Substance: MEPOLIZUMAB
     Indication: Asthma
     Dosage: 100 MG
  2. NUCALA [Suspect]
     Active Substance: MEPOLIZUMAB
     Indication: Nasal polyps
  3. MOMETASONE FUROATE [Concomitant]
     Active Substance: MOMETASONE FUROATE
     Indication: Product used for unknown indication
     Dosage: UNK
  4. MAGNESIUM [Concomitant]
     Active Substance: MAGNESIUM
     Indication: Product used for unknown indication
     Dosage: UNK
  5. CORTISONE [Concomitant]
     Active Substance: CORTISONE
     Indication: Cough
  6. CORTISONE [Concomitant]
     Active Substance: CORTISONE
     Indication: Dyspnoea

REACTIONS (13)
  - Polyneuropathy [Not Recovered/Not Resolved]
  - Restless legs syndrome [Not Recovered/Not Resolved]
  - Tremor [Not Recovered/Not Resolved]
  - Limb discomfort [Unknown]
  - Fatigue [Unknown]
  - Hypoaesthesia [Unknown]
  - Dyspnoea [Not Recovered/Not Resolved]
  - Insomnia [Unknown]
  - Cough [Not Recovered/Not Resolved]
  - Lactose intolerance [Unknown]
  - Paraesthesia [Recovering/Resolving]
  - Costochondritis [Unknown]
  - Lung disorder [Unknown]

NARRATIVE: CASE EVENT DATE: 20231206
